FAERS Safety Report 26050729 (Version 2)
Quarter: 2025Q4

REPORT INFORMATION
  Report Type: Spontaneous
  Country: JP (occurrence: JP)
  Receive Date: 20251116
  Receipt Date: 20251203
  Transmission Date: 20260118
  Serious: Yes (Other)
  Sender: GENMAB
  Company Number: JP-GENMAB-2025-03559

PATIENT
  Age: 67 Year
  Sex: Male

DRUGS (2)
  1. EPKINLY [Suspect]
     Active Substance: EPCORITAMAB-BYSP
     Indication: Diffuse large B-cell lymphoma
     Dosage: 0.16 MILLIGRAM, SINGLE
     Route: 065
     Dates: start: 20241210, end: 20241210
  2. EPKINLY [Suspect]
     Active Substance: EPCORITAMAB-BYSP
     Dosage: UNK, INTERRUPTED AFTER CYCLE 6
     Route: 065
     Dates: start: 202412, end: 2025

REACTIONS (1)
  - Parkinson^s disease [Recovering/Resolving]

NARRATIVE: CASE EVENT DATE: 20241230
